FAERS Safety Report 21134596 (Version 1)
Quarter: 2022Q3

REPORT INFORMATION
  Report Type: Spontaneous
  Country: US (occurrence: US)
  Receive Date: 20220727
  Receipt Date: 20220727
  Transmission Date: 20221026
  Serious: Yes (Other)
  Sender: FDA-Public Use
  Company Number: US-SUN PHARMACEUTICAL INDUSTRIES LTD-2022R1-345714

PATIENT
  Age: 76 Year
  Sex: Male

DRUGS (3)
  1. MIRTAZAPINE [Suspect]
     Active Substance: MIRTAZAPINE
     Indication: Insomnia
     Dosage: UNK
     Route: 065
  2. MELATONIN [Suspect]
     Active Substance: MELATONIN
     Indication: Insomnia
     Dosage: UNK
     Route: 065
  3. SUVOREXANT [Suspect]
     Active Substance: SUVOREXANT
     Indication: Insomnia
     Dosage: UNK
     Route: 065

REACTIONS (1)
  - Therapy non-responder [Unknown]
